FAERS Safety Report 26032642 (Version 1)
Quarter: 2025Q4

REPORT INFORMATION
  Report Type: Spontaneous
  Country: EG (occurrence: EG)
  Receive Date: 20251112
  Receipt Date: 20251112
  Transmission Date: 20260117
  Serious: Yes (Hospitalization, Other)
  Sender: HIKMA
  Company Number: EG-HIKMA PHARMACEUTICALS-EG-H14001-25-11889

PATIENT
  Age: 51 Year
  Sex: Male
  Weight: 60 kg

DRUGS (6)
  1. CARBOPLATIN [Suspect]
     Active Substance: CARBOPLATIN
     Indication: Pleural mesothelioma
     Dosage: 500 MILLIGRAM INFUSION OVER ONE HOUR
     Route: 041
  2. CARBOPLATIN [Suspect]
     Active Substance: CARBOPLATIN
     Dosage: 500 MILLIGRAM INFUSION OVER ONE HOUR (SECOND DOSE)
     Route: 041
     Dates: start: 20250820
  3. PEMETREXED [Suspect]
     Active Substance: PEMETREXED
     Indication: Pleural mesothelioma
     Dosage: 800 MILLIGRAM IN 100 ML NORMAL SALINE OVER 10 MINUTES
     Route: 041
  4. PEMETREXED [Suspect]
     Active Substance: PEMETREXED
     Dosage: 800 MILLIGRAM IN 100 ML NORMAL SALINE OVER 10 MINUTES (SECOND DOSE)
     Route: 041
     Dates: start: 20250820
  5. DEXAMETHASONE [Concomitant]
     Active Substance: DEXAMETHASONE
     Indication: Chemotherapy side effect prophylaxis
     Dosage: UNKNOWN
     Route: 065
  6. EM EX [Concomitant]
     Indication: Chemotherapy side effect prophylaxis
     Dosage: UNKNOWN
     Route: 065

REACTIONS (4)
  - Dyspnoea [Recovered/Resolved]
  - Hyperhidrosis [Recovered/Resolved]
  - Hypotension [Recovered/Resolved]
  - Abdominal pain [Recovered/Resolved]
